FAERS Safety Report 19478150 (Version 2)
Quarter: 2021Q3

REPORT INFORMATION
  Report Type: Spontaneous
  Country: US (occurrence: US)
  Receive Date: 20210630
  Receipt Date: 20210913
  Transmission Date: 20211014
  Serious: No
  Sender: FDA-Public Use
  Company Number: US-SA-2021SA207339

PATIENT
  Age: 63 Year
  Sex: Female

DRUGS (1)
  1. LANTUS [Suspect]
     Active Substance: INSULIN GLARGINE
     Dosage: UNK
     Route: 065

REACTIONS (6)
  - Poor quality product administered [Recovering/Resolving]
  - Visual impairment [Unknown]
  - Blood glucose increased [Recovering/Resolving]
  - Product quality issue [Recovering/Resolving]
  - Eye operation [Unknown]
  - Product odour abnormal [Recovering/Resolving]
